FAERS Safety Report 21957966 (Version 1)
Quarter: 2023Q1

REPORT INFORMATION
  Report Type: Report from Study
  Country: NL (occurrence: NL)
  Receive Date: 20230206
  Receipt Date: 20230206
  Transmission Date: 20230418
  Serious: Yes (Life-Threatening)
  Sender: FDA-Public Use
  Company Number: NL-GILEAD-2022-0605163

PATIENT
  Age: 71 Year
  Sex: Female
  Weight: 75 kg

DRUGS (50)
  1. BREXUCABTAGENE AUTOLEUCEL [Suspect]
     Active Substance: BREXUCABTAGENE AUTOLEUCEL
     Indication: Mantle cell lymphoma
     Dosage: 68
     Route: 042
     Dates: start: 20221102, end: 20221102
  2. CYCLOPHOSPHAMIDE [Suspect]
     Active Substance: CYCLOPHOSPHAMIDE
     Indication: Bone marrow conditioning regimen
     Dosage: 1000
     Route: 042
     Dates: start: 20221028, end: 20221030
  3. FLUDARABINE [Suspect]
     Active Substance: FLUDARABINE PHOSPHATE
     Indication: Bone marrow conditioning regimen
     Dosage: 55
     Route: 042
     Dates: start: 20221028, end: 20221030
  4. COTRIMOXAZOLE [Concomitant]
     Active Substance: SULFAMETHOXAZOLE\TRIMETHOPRIM
     Indication: Product used for unknown indication
     Route: 065
  5. MAGNESIUM CITRATE [Concomitant]
     Active Substance: MAGNESIUM CITRATE
     Dosage: 376,MG,DAILY
     Route: 048
     Dates: start: 2022, end: 20221115
  6. CHOLECALCIFEROL [Concomitant]
     Active Substance: CHOLECALCIFEROL
     Dosage: 800,OTHER,DAILY
     Route: 048
     Dates: start: 2022, end: 20221115
  7. HYDROCHLOROTHIAZIDE [Concomitant]
     Active Substance: HYDROCHLOROTHIAZIDE
     Dosage: 12.5,MG,DAILY
     Route: 048
     Dates: start: 20220524, end: 20221115
  8. HYDROCHLOROTHIAZIDE [Concomitant]
     Active Substance: HYDROCHLOROTHIAZIDE
     Dosage: 25,MG,DAILY
     Route: 048
     Dates: start: 202211, end: 20221205
  9. LOSARTAN [Concomitant]
     Active Substance: LOSARTAN
     Dosage: 100,MG,DAILY
     Route: 048
     Dates: start: 20220624, end: 20221115
  10. HEPARIN [Concomitant]
     Active Substance: HEPARIN SODIUM
     Dosage: 200,OTHER,DAILY
     Route: 042
     Dates: start: 20221027
  11. SODIUM FLUORIDE [Concomitant]
     Active Substance: SODIUM FLUORIDE
     Dosage: 10,OTHER,OTHER
     Route: 050
     Dates: start: 20221027, end: 20221115
  12. ACETAMINOPHEN [Concomitant]
     Active Substance: ACETAMINOPHEN
     Dosage: 500,MG,OTHER
     Route: 048
     Dates: start: 20221028, end: 20221115
  13. GRANISETRON [Concomitant]
     Active Substance: GRANISETRON
     Dosage: 1,MG,DAILY
     Route: 042
     Dates: start: 20221028, end: 20221030
  14. LORAZEPAM [Concomitant]
     Active Substance: LORAZEPAM
     Dosage: 0.5,MG,THREE TIMES DAILY
     Route: 042
     Dates: start: 20221030, end: 20221101
  15. METOCLOPRAMIDE [Concomitant]
     Active Substance: METOCLOPRAMIDE
     Dosage: 10,MG,THREE TIMES DAILY
     Route: 048
     Dates: start: 20221030, end: 20221115
  16. POTASSIUM CHLORIDE [Concomitant]
     Active Substance: POTASSIUM CHLORIDE
     Dosage: 600,MG,THREE TIMES DAILY
     Route: 048
     Dates: start: 20221030, end: 20221031
  17. SODIUM PHOSPHATE [Concomitant]
     Active Substance: SODIUM PHOSPHATE
     Dosage: 40,OTHER,THREE TIMES DAILY
     Route: 048
     Dates: start: 20221101, end: 20221102
  18. SODIUM PHOSPHATE [Concomitant]
     Active Substance: SODIUM PHOSPHATE
     Dosage: 40,OTHER,THREE TIMES DAILY
     Route: 048
     Dates: start: 20221108, end: 20221109
  19. MOVICOLON [Concomitant]
     Active Substance: POLYETHYLENE GLYCOL 3350\POTASSIUM CHLORIDE\SODIUM BICARBONATE\SODIUM CHLORIDE
     Dosage: SACHET,OTHER,TWICE DAILY
     Route: 048
     Dates: start: 20221101, end: 20221108
  20. PIPERACILLIN SODIUM\TAZOBACTAM SODIUM [Concomitant]
     Active Substance: PIPERACILLIN SODIUM\TAZOBACTAM SODIUM
     Dosage: 4500,MG,FOUR TIMES DAILY
     Route: 042
     Dates: start: 20221105, end: 20221108
  21. TOCILIZUMAB [Concomitant]
     Active Substance: TOCILIZUMAB
     Dosage: 600,MG,ONCE
     Route: 042
     Dates: start: 20221106, end: 20221106
  22. TOCILIZUMAB [Concomitant]
     Active Substance: TOCILIZUMAB
     Dosage: 600,MG,ONCE
     Route: 042
     Dates: start: 20221107, end: 20221107
  23. TOCILIZUMAB [Concomitant]
     Active Substance: TOCILIZUMAB
     Dosage: 600,MG,ONCE
     Route: 042
     Dates: start: 20221107, end: 20221107
  24. TOCILIZUMAB [Concomitant]
     Active Substance: TOCILIZUMAB
     Dosage: 600,MG,ONCE
     Route: 042
     Dates: start: 20221108, end: 20221108
  25. POTASSIUM [Concomitant]
     Active Substance: POTASSIUM
     Dosage: 1200,MG,TWICE DAILY
     Route: 048
     Dates: start: 20221107, end: 20221109
  26. DEXAMETHASONE [Concomitant]
     Active Substance: DEXAMETHASONE
     Dosage: 10,MG,DAILY
     Route: 042
     Dates: start: 20221107, end: 20221114
  27. SODIUM CHLORIDE [Concomitant]
     Active Substance: SODIUM CHLORIDE
     Dosage: 500,ML,ONCE
     Route: 042
     Dates: start: 20221107, end: 20221107
  28. GELATIN [Concomitant]
     Active Substance: GELATIN
     Dosage: 500,ML,ONCE
     Route: 042
     Dates: start: 20221107, end: 20221107
  29. CLOBETASOL [Concomitant]
     Active Substance: CLOBETASOL
     Dosage: 0.5,OTHER,TWICE DAILY
     Route: 061
     Dates: start: 20221109, end: 20221115
  30. CLOBETASOL [Concomitant]
     Active Substance: CLOBETASOL
     Dosage: 0.5,OTHER,TWICE DAILY
     Route: 061
     Dates: start: 20221109, end: 20221115
  31. MOMETASONE FUROATE [Concomitant]
     Active Substance: MOMETASONE FUROATE
     Dosage: 1,OTHER,TWICE DAILY
     Route: 061
     Dates: start: 20221027, end: 20221115
  32. OXYCODONE [Concomitant]
     Active Substance: OXYCODONE
     Dosage: 5,MG,OTHER
     Route: 048
     Dates: start: 20221110, end: 20221111
  33. FUROSEMIDE [Concomitant]
     Active Substance: FUROSEMIDE
     Dosage: 20,MG,DAILY
     Route: 042
     Dates: start: 20221110, end: 20221115
  34. HALOPERIDOL [Concomitant]
     Active Substance: HALOPERIDOL
     Dosage: 2,MG,TWICE DAILY
     Route: 048
     Dates: start: 20221113, end: 20221115
  35. PHYTONADIONE [Concomitant]
     Active Substance: PHYTONADIONE
     Dosage: 10,MG,OTHER
     Route: 042
     Dates: start: 20221114
  36. PHYTONADIONE [Concomitant]
     Active Substance: PHYTONADIONE
     Dosage: 10,MG,OTHER
     Route: 042
     Dates: start: 20221114, end: 20221203
  37. CARBOMER [Concomitant]
     Active Substance: CARBOMER
     Dosage: 2,OTHER,OTHER
     Route: 031
     Dates: start: 20221114
  38. ACYCLOVIR [Concomitant]
     Active Substance: ACYCLOVIR
     Dosage: 5,MG,TWICE DAILY
     Route: 042
     Dates: start: 20221115
  39. ACYCLOVIR [Concomitant]
     Active Substance: ACYCLOVIR
     Dosage: 5,MG,TWICE DAILY
     Route: 042
     Dates: start: 20221115, end: 20221206
  40. LABETALOL [Concomitant]
     Active Substance: LABETALOL\LABETALOL HYDROCHLORIDE
     Dosage: 5,OTHER,CONTINUOUS
     Route: 042
     Dates: start: 202211, end: 20221225
  41. AMLODIPINE [Concomitant]
     Active Substance: AMLODIPINE BESYLATE
     Dosage: 10,MG,DAILY
     Route: 048
     Dates: start: 202211, end: 20221215
  42. PANTOPRAZOLE [Concomitant]
     Active Substance: PANTOPRAZOLE
     Dosage: 40,MG,DAILY
     Route: 042
     Dates: start: 202211, end: 20221225
  43. OLIMEL [Concomitant]
     Active Substance: AMINO ACIDS\DEXTROSE\SOYBEAN OIL
     Dosage: 3500,MG,DAILY
     Route: 042
     Dates: start: 20221112, end: 20221203
  44. CEFOTAXIME [Concomitant]
     Active Substance: CEFOTAXIME SODIUM
     Dosage: 2000,MG,OTHER
     Route: 042
     Dates: start: 20221116, end: 20221206
  45. LEVETIRACETAM [Concomitant]
     Active Substance: LEVETIRACETAM
     Dosage: 1250,MG,TWICE DAILY
     Route: 042
     Dates: start: 20221203, end: 20221209
  46. LEVETIRACETAM [Concomitant]
     Active Substance: LEVETIRACETAM
     Dosage: 1250,MG,TWICE DAILY
     Route: 048
     Dates: start: 20221210, end: 20221225
  47. VALPROATE SODIUM [Concomitant]
     Active Substance: VALPROATE SODIUM
     Dosage: 500,MG,TWICE DAILY
     Route: 042
     Dates: start: 20221203, end: 20221225
  48. METHYLPREDNISOLONE [Concomitant]
     Active Substance: METHYLPREDNISOLONE
     Dosage: 1000,MG,DAILY
     Route: 042
     Dates: start: 20221203, end: 20221207
  49. INSULIN NOS [Concomitant]
     Active Substance: INSULIN NOS
     Dosage: 2,OTHER,CONTINUOUS
     Route: 042
     Dates: start: 20221204, end: 20221225
  50. FOSCARNET [Concomitant]
     Active Substance: FOSCARNET
     Dosage: 90,MG/KG,TWICE DAILY
     Route: 042
     Dates: start: 20221206, end: 20221216

REACTIONS (2)
  - Stevens-Johnson syndrome [Recovered/Resolved]
  - Stevens-Johnson syndrome [Recovered/Resolved]

NARRATIVE: CASE EVENT DATE: 20221111
